FAERS Safety Report 23416259 (Version 1)
Quarter: 2024Q1

REPORT INFORMATION
  Report Type: Spontaneous
  Country: GB (occurrence: GB)
  Receive Date: 20240118
  Receipt Date: 20240118
  Transmission Date: 20240409
  Serious: Yes (Other)
  Sender: FDA-Public Use
  Company Number: None

PATIENT
  Age: 58 Year
  Weight: 70 kg

DRUGS (9)
  1. ALENDRONIC ACID [Suspect]
     Active Substance: ALENDRONIC ACID
     Dosage: 70MG. SWALLOW ONE TABLET WHOLE ONCE WEEKLY, FIRST THI...
     Route: 065
     Dates: start: 20231215
  2. AMLODIPINE [Concomitant]
     Active Substance: AMLODIPINE BESYLATE
     Indication: Hypertension
     Dates: start: 20230413
  3. ALBUTEROL [Concomitant]
     Active Substance: ALBUTEROL
     Dosage: TIME INTERVAL: AS NECESSARY: INHALE 2 DOSES AS NEEDED
     Route: 055
     Dates: start: 20230413
  4. THEICAL-D3 [Concomitant]
     Dates: start: 20231215
  5. CETRABEN EMOLLIENT CREAM [Concomitant]
     Dosage: TO BE USED AS A SOAP SUBSTITUTE AND EMOLLIENT A...
     Dates: start: 20230413
  6. OMEPRAZOLE [Concomitant]
     Active Substance: OMEPRAZOLE
     Dates: start: 20230413
  7. CODEINE PHOSPHATE [Concomitant]
     Active Substance: CODEINE PHOSPHATE
     Indication: Analgesic therapy
     Dosage: TAKE ONE UPTO FOUR TIMES DAILY
     Dates: start: 20230413
  8. KELHALE [Concomitant]
     Dates: start: 20230413
  9. MIRTAZAPINE [Concomitant]
     Active Substance: MIRTAZAPINE
     Dates: start: 20230413

REACTIONS (1)
  - Swelling face [Recovered/Resolved]
